FAERS Safety Report 18065537 (Version 1)
Quarter: 2020Q3

REPORT INFORMATION
  Report Type: Spontaneous
  Country: US (occurrence: US)
  Receive Date: 20200724
  Receipt Date: 20200724
  Transmission Date: 20201103
  Serious: No
  Sender: FDA-Public Use
  Company Number: None

PATIENT

DRUGS (1)
  1. RECALL?METFORMIN HYDROCHLORIDE EXTENDED?RELEASE TABLETS USP, 500MG [Suspect]
     Active Substance: METFORMIN HYDROCHLORIDE

REACTIONS (4)
  - Product measured potency issue [None]
  - Diarrhoea [None]
  - Vomiting [None]
  - Abdominal pain [None]

NARRATIVE: CASE EVENT DATE: 201806
